FAERS Safety Report 4947761-0 (Version None)
Quarter: 2006Q1

REPORT INFORMATION
  Report Type: 
  Country: None (occurrence: None)
  Receive Date: 20060314
  Receipt Date: 20060309
  Transmission Date: 20060701
  Serious: Yes (Other)
  Sender: FDA-Public Use
  Company Number: 006849

PATIENT
  Sex: Female

DRUGS (6)
  1. MEDROXYPROGESTERONE ACETATE [Suspect]
     Dosage: ORAL
     Route: 048
  2. ESTRACE [Suspect]
     Dosage: ORAL
     Route: 048
  3. PREMARIN [Suspect]
     Dosage: ORAL
     Route: 048
  4. PROVERA [Suspect]
     Dosage: ORAL
     Route: 048
  5. PREMPRO [Suspect]
     Dosage: ORAL
     Route: 048
  6. ESTROGENIC SUBSTANCE [Suspect]
     Dosage: ORAL
     Route: 048

REACTIONS (1)
  - BREAST CANCER FEMALE [None]
